FAERS Safety Report 4939419-9 (Version None)
Quarter: 2006Q1

REPORT INFORMATION
  Report Type: 
  Country: None (occurrence: None)
  Receive Date: 20060307
  Receipt Date: 20060227
  Transmission Date: 20060701
  Serious: Yes (Hospitalization, Other)
  Sender: FDA-Public Use
  Company Number: 200510407BVD

PATIENT
  Age: 60 Year
  Sex: Male

DRUGS (3)
  1. AVELOX [Suspect]
     Indication: RESPIRATORY TRACT INFECTION
     Dosage: 400 MG, TOTAL DAILY, ORAL
     Route: 048
     Dates: start: 20050329, end: 20050403
  2. ACC 200 [Concomitant]
  3. NORVASC [Concomitant]

REACTIONS (7)
  - AREFLEXIA [None]
  - ASTHENIA [None]
  - GUILLAIN-BARRE SYNDROME [None]
  - NEURALGIA [None]
  - PARAESTHESIA [None]
  - QUADRIPARESIS [None]
  - TACHYARRHYTHMIA [None]
